FAERS Safety Report 7543623-3 (Version None)
Quarter: 2011Q2

REPORT INFORMATION
  Report Type: 
  Country: None (occurrence: None)
  Receive Date: 20110613
  Receipt Date: 20030509
  Transmission Date: 20111010
  Serious: Yes (Hospitalization, Other)
  Sender: FDA-Public Use
  Company Number: PHFR2003GB01703

PATIENT
  Sex: Male

DRUGS (2)
  1. CLOZAPINE [Suspect]
     Indication: SCHIZOPHRENIA
     Dosage: 250MG/DAY
     Route: 048
     Dates: start: 19990407
  2. CLOZAPINE [Suspect]
     Dosage: 400MG/DAY
     Route: 048
     Dates: start: 20030401

REACTIONS (2)
  - NEUTROPHILIA [None]
  - LOWER RESPIRATORY TRACT INFECTION [None]
